FAERS Safety Report 17580107 (Version 1)
Quarter: 2020Q1

REPORT INFORMATION
  Report Type: Spontaneous
  Country: FR (occurrence: FR)
  Receive Date: 20200325
  Receipt Date: 20200325
  Transmission Date: 20200409
  Serious: Yes (Hospitalization)
  Sender: FDA-Public Use
  Company Number: FR-PFIZER INC-2020123630

PATIENT
  Age: 88 Year
  Sex: Female
  Weight: 78 kg

DRUGS (12)
  1. SOLU-MEDROL [Suspect]
     Active Substance: METHYLPREDNISOLONE SODIUM SUCCINATE
     Indication: PROPHYLACTIC CHEMOTHERAPY
     Dosage: 80 MG, SINGLE
     Route: 042
     Dates: start: 20200124, end: 2020
  2. ONDANSETRON [Suspect]
     Active Substance: ONDANSETRON
     Indication: PROPHYLAXIS OF NAUSEA AND VOMITING
     Dosage: 8 MG, UNK
     Route: 041
     Dates: start: 20200124, end: 2020
  3. APROVEL [Concomitant]
     Active Substance: IRBESARTAN
     Dosage: UNK
  4. INEXIUM [ESOMEPRAZOLE MAGNESIUM] [Concomitant]
     Active Substance: ESOMEPRAZOLE MAGNESIUM
     Dosage: UNK
  5. POLARAMINE [Suspect]
     Active Substance: DEXCHLORPHENIRAMINE MALEATE
     Indication: PROPHYLACTIC CHEMOTHERAPY
     Dosage: 5 MG, SINGLE
     Route: 042
     Dates: start: 20200124, end: 2020
  6. CARBOPLATIN ACCORD [Suspect]
     Active Substance: CARBOPLATIN
     Indication: OVARIAN CANCER
     Dosage: 215 MG, CYCLIC
     Route: 041
     Dates: start: 20190924
  7. SPIRIVA [Concomitant]
     Active Substance: TIOTROPIUM BROMIDE MONOHYDRATE
     Dosage: UNK
  8. ALDACTAZINE [Concomitant]
     Active Substance: ALTHIAZIDE\SPIRONOLACTONE
     Dosage: UNK
  9. CORTANCYL [Concomitant]
     Active Substance: PREDNISONE
     Dosage: UNK
  10. TAHOR [Concomitant]
     Active Substance: ATORVASTATIN CALCIUM
     Dosage: UNK
  11. AVASTIN [Suspect]
     Active Substance: BEVACIZUMAB
     Indication: OVARIAN CANCER
     Dosage: 820 MG, CYCLIC
     Route: 041
     Dates: start: 20200124, end: 2020
  12. SYMBICORT [Concomitant]
     Active Substance: BUDESONIDE\FORMOTEROL FUMARATE DIHYDRATE
     Dosage: UNK

REACTIONS (4)
  - Dyspnoea [Recovered/Resolved]
  - Erythema [Recovered/Resolved]
  - Hypersensitivity [Recovered/Resolved]
  - Malaise [Recovered/Resolved]

NARRATIVE: CASE EVENT DATE: 20200124
